FAERS Safety Report 5940186-0 (Version None)
Quarter: 2008Q4

REPORT INFORMATION
  Report Type: 
  Country: None (occurrence: None)
  Receive Date: 20081104
  Receipt Date: 20080304
  Transmission Date: 20090506
  Serious: No
  Sender: FDA-Public Use
  Company Number: US-BAYER-200811081BCC

PATIENT
  Age: 39 Year
  Sex: Female
  Weight: 85 kg

DRUGS (3)
  1. ALEVE (CAPLET) [Suspect]
     Indication: ANALGESIA
     Dosage: TOTAL DAILY DOSE: 880 MG  UNIT DOSE: 220 MG
     Route: 048
     Dates: start: 20080304
  2. PHENOBARBITAL TAB [Concomitant]
  3. DILANTIN [Concomitant]

REACTIONS (2)
  - OEDEMA PERIPHERAL [None]
  - PRURITUS [None]
